FAERS Safety Report 7518055-4 (Version None)
Quarter: 2011Q2

REPORT INFORMATION
  Report Type: 
  Country: None (occurrence: None)
  Receive Date: 20110531
  Receipt Date: 20110531
  Transmission Date: 20111010
  Serious: No
  Sender: FDA-Public Use
  Company Number: None

PATIENT
  Age: 49 Year
  Sex: Female
  Weight: 83.4619 kg

DRUGS (1)
  1. SUMATRIPTAN SUCCINATE [Suspect]
     Indication: MIGRAINE
     Dosage: 100MG AT ONSET AND 2H PR PO
     Route: 048
     Dates: start: 20110211, end: 20110526

REACTIONS (2)
  - PRODUCT SUBSTITUTION ISSUE [None]
  - DRUG EFFECT DECREASED [None]
